FAERS Safety Report 7595535-7 (Version None)
Quarter: 2011Q3

REPORT INFORMATION
  Report Type: 
  Country: None (occurrence: None)
  Receive Date: 20110707
  Receipt Date: 20100210
  Transmission Date: 20111222
  Serious: Yes (Other)
  Sender: FDA-Public Use
  Company Number: US-GLAXOSMITHKLINE-A0843879A

PATIENT
  Age: 55 Year
  Sex: Male

DRUGS (11)
  1. PROMACTA [Suspect]
     Indication: HAEMORRHAGIC DISORDER
     Dosage: 50MG PER DAY
     Route: 048
     Dates: start: 20090701, end: 20090101
  2. OXYBUTYNIN [Concomitant]
  3. PREVACID [Concomitant]
  4. RESTORIL [Concomitant]
  5. VALIUM [Concomitant]
  6. DILAUDID [Concomitant]
  7. OXYCONTIN [Concomitant]
  8. COLCHICINE [Concomitant]
  9. DETROL [Concomitant]
  10. ALLOPURINOL [Concomitant]
  11. CLONIDINE [Concomitant]

REACTIONS (8)
  - WEIGHT DECREASED [None]
  - ARTHRALGIA [None]
  - VISION BLURRED [None]
  - BONE MARROW RETICULIN FIBROSIS [None]
  - PRURITUS [None]
  - DEPRESSION [None]
  - FATIGUE [None]
  - MYALGIA [None]
